FAERS Safety Report 4927224-9 (Version None)
Quarter: 2006Q1

REPORT INFORMATION
  Report Type: 
  Country: None (occurrence: None)
  Receive Date: 20060228
  Receipt Date: 20050207
  Transmission Date: 20060701
  Serious: No
  Sender: FDA-Public Use
  Company Number: S05-USA-00407-01

PATIENT
  Sex: Female

DRUGS (2)
  1. IMITREX [Suspect]
     Indication: MIGRAINE
     Route: 065
  2. LEXAPRO [Suspect]
     Indication: DRUG USE FOR UNKNOWN INDICATION
     Dosage: 10MG PER DAY
     Route: 048

REACTIONS (2)
  - DRUG INEFFECTIVE [None]
  - DRUG INTERACTION [None]
